FAERS Safety Report 11716717 (Version 2)
Quarter: 2015Q4

REPORT INFORMATION
  Report Type: Spontaneous
  Country: US (occurrence: US)
  Receive Date: 20151104
  Receipt Date: 20151110
  Transmission Date: 20160304
  Serious: No
  Sender: FDA-Public Use
  Company Number: US-ELI_LILLY_AND_COMPANY-US201103004800

PATIENT
  Age: 72 Year
  Sex: Female

DRUGS (3)
  1. FORTEO [Suspect]
     Active Substance: TERIPARATIDE
     Dosage: 20 UG, QD
  2. FORTEO [Suspect]
     Active Substance: TERIPARATIDE
     Dosage: 20 UG, QD
     Dates: end: 20120327
  3. FORTEO [Suspect]
     Active Substance: TERIPARATIDE
     Indication: OSTEOPOROSIS POSTMENOPAUSAL
     Dosage: 20 UG, QD
     Dates: start: 20101109

REACTIONS (12)
  - Bone pain [Recovered/Resolved]
  - Muscle spasms [Unknown]
  - Drug ineffective [Unknown]
  - Bone density decreased [Unknown]
  - Sleep disorder due to a general medical condition [Recovered/Resolved]
  - Osteopenia [Unknown]
  - Discomfort [Recovered/Resolved]
  - Malaise [Unknown]
  - Bone density decreased [Unknown]
  - Eating disorder [Recovered/Resolved]
  - Adverse event [Unknown]
  - Nausea [Recovered/Resolved]

NARRATIVE: CASE EVENT DATE: 20120503
